FAERS Safety Report 7318916-5 (Version None)
Quarter: 2011Q1

REPORT INFORMATION
  Report Type: 
  Country: None (occurrence: None)
  Receive Date: 20110215
  Receipt Date: 20110131
  Transmission Date: 20110831
  Serious: Yes (Other)
  Sender: FDA-Public Use
  Company Number: 2011000524

PATIENT
  Age: 72 Year
  Sex: Female
  Weight: 96.1626 kg

DRUGS (2)
  1. MIRACLE MOUTHWASH [Concomitant]
  2. TARCEVA [Suspect]
     Indication: LUNG NEOPLASM MALIGNANT
     Dosage: 150 MG, DAILY, ORAL
     Route: 048
     Dates: start: 20101226, end: 20110122

REACTIONS (3)
  - CORNEAL DISORDER [None]
  - DIARRHOEA [None]
  - STOMATITIS [None]
